FAERS Safety Report 9540674 (Version 1)
Quarter: 2013Q3

REPORT INFORMATION
  Report Type: Spontaneous
  Country: GB (occurrence: GB)
  Receive Date: 20130920
  Receipt Date: 20130920
  Transmission Date: 20140515
  Serious: Yes (Death)
  Sender: FDA-Public Use
  Company Number: GB-B.I. PHARMACEUTICALS,INC./RIDGEFIELD-2013-BI-29401UK

PATIENT
  Age: 67 Year
  Sex: Male

DRUGS (5)
  1. PRADAXA [Suspect]
     Indication: THROMBOSIS PROPHYLAXIS
     Dosage: 220 MG
     Route: 048
     Dates: start: 20120823, end: 20120828
  2. AMLODIPINE [Suspect]
     Indication: HYPERTENSION
     Dosage: 10 MG
     Route: 048
  3. ATENOLOL [Suspect]
     Indication: HYPERTENSION
     Dosage: 50 MG
     Route: 048
  4. PARACETAMOL [Suspect]
     Indication: ANALGESIC THERAPY
     Dosage: 4 G
     Route: 048
  5. TRAMADOL [Suspect]
     Indication: ANALGESIC THERAPY
     Dosage: 200 MG
     Route: 048

REACTIONS (1)
  - Gastrointestinal haemorrhage [Fatal]
